FAERS Safety Report 24898252 (Version 1)
Quarter: 2025Q1

REPORT INFORMATION
  Report Type: Report from Study
  Country: US (occurrence: US)
  Receive Date: 20250129
  Receipt Date: 20250129
  Transmission Date: 20250409
  Serious: Yes (Hospitalization)
  Sender: ABBVIE
  Company Number: US-ABBVIE-6104880

PATIENT
  Age: 55 Year
  Sex: Female
  Weight: 79 kg

DRUGS (8)
  1. IMBRUVICA [Suspect]
     Active Substance: IBRUTINIB
     Indication: Lymphoma
     Dosage: FORM STRENGTH: 420 MILLIGRAM
     Route: 048
     Dates: start: 202008
  2. OXITRIPTAN [Concomitant]
     Active Substance: OXITRIPTAN
     Indication: Serum serotonin decreased
  3. LATANOPROST [Concomitant]
     Active Substance: LATANOPROST
     Indication: Glaucoma
  4. LOSARTAN [Concomitant]
     Active Substance: LOSARTAN
     Indication: Hypertension
  5. Omega [Concomitant]
     Indication: Product used for unknown indication
  6. D3 5000 [Concomitant]
     Indication: Vitamin supplementation
  7. TURMERIC SUPREME EXTRA STRENGTH [Concomitant]
     Indication: Multiple allergies
  8. VIMPAT [Concomitant]
     Active Substance: LACOSAMIDE
     Indication: Seizure

REACTIONS (7)
  - Pituitary tumour [Recovered/Resolved]
  - Photophobia [Recovered/Resolved]
  - Incorrect dose administered [Not Recovered/Not Resolved]
  - Headache [Recovered/Resolved]
  - Breast pain [Recovered/Resolved]
  - Gallbladder disorder [Recovered/Resolved]
  - Wrong technique in product usage process [Not Recovered/Not Resolved]

NARRATIVE: CASE EVENT DATE: 20230101
